FAERS Safety Report 12587283 (Version 1)
Quarter: 2016Q3

REPORT INFORMATION
  Report Type: Spontaneous
  Country: FR (occurrence: FR)
  Receive Date: 20160725
  Receipt Date: 20160725
  Transmission Date: 20161109
  Serious: Yes (Hospitalization, Other)
  Sender: FDA-Public Use
  Company Number: FR-PFIZER INC-2016350908

PATIENT
  Age: 90 Year
  Sex: Female

DRUGS (5)
  1. ISOPTINE [Suspect]
     Active Substance: VERAPAMIL HYDROCHLORIDE
     Dosage: UNK (120 MG MORNING AND 60 MG EVENING DAILY)
     Route: 048
  2. PREVISCAN [Concomitant]
     Active Substance: FLUINDIONE
     Dosage: UNK
  3. ISOPTINE [Suspect]
     Active Substance: VERAPAMIL HYDROCHLORIDE
     Dosage: 120 MG, 2X/DAY
  4. BISOCE [Suspect]
     Active Substance: BISOPROLOL
     Dosage: UNK (1.25 MG ALTERNATING WITH 2.5 MG DAILY)
     Route: 048
  5. CORDARONE [Suspect]
     Active Substance: AMIODARONE HYDROCHLORIDE
     Dosage: 200 MG, UNK (200 MG DAILY 5 DAY WEEKLY)
     Route: 048

REACTIONS (10)
  - Asthenia [Unknown]
  - Blood lactic acid increased [Unknown]
  - Hepatic function abnormal [Unknown]
  - Blood pH decreased [Unknown]
  - Hypotension [Unknown]
  - Pallor [Unknown]
  - Glomerular filtration rate decreased [Unknown]
  - Rales [Unknown]
  - Blood bicarbonate decreased [Unknown]
  - Blood potassium increased [Unknown]

NARRATIVE: CASE EVENT DATE: 20160119
